FAERS Safety Report 20915474 (Version 1)
Quarter: 2022Q2

REPORT INFORMATION
  Report Type: Spontaneous
  Country: US (occurrence: US)
  Receive Date: 20220604
  Receipt Date: 20220604
  Transmission Date: 20220721
  Serious: No
  Sender: FDA-Public Use
  Company Number: US-SA-SAC20220525001265

PATIENT
  Sex: Male

DRUGS (3)
  1. KEVZARA [Suspect]
     Active Substance: SARILUMAB
     Indication: Psoriasis
     Dosage: 200 MG, QOW
     Route: 058
     Dates: start: 202109
  2. KEVZARA [Suspect]
     Active Substance: SARILUMAB
     Indication: Rheumatoid arthritis
  3. CIMZIA [Concomitant]
     Active Substance: CERTOLIZUMAB PEGOL
     Dosage: INJECT 2 SYRINGES SUBCUTENEOUSLY AT WEEKS 0, 2 AND 4 THEN INJECT 2 SYRINGE EVERY 4 WEEKS THERAFTER
     Route: 058

REACTIONS (2)
  - Blood glucose fluctuation [Not Recovered/Not Resolved]
  - Product use in unapproved indication [Unknown]

NARRATIVE: CASE EVENT DATE: 20210901
